FAERS Safety Report 7528983-1 (Version None)
Quarter: 2011Q2

REPORT INFORMATION
  Report Type: 
  Country: None (occurrence: None)
  Receive Date: 20110607
  Receipt Date: 20110531
  Transmission Date: 20111010
  Serious: Yes (Death, Disabling, Other)
  Sender: FDA-Public Use
  Company Number: US-BRACCO-005113

PATIENT
  Sex: Female
  Weight: 149 kg

DRUGS (21)
  1. PROHANCE [Suspect]
     Indication: ANGIOGRAM
     Dates: start: 20070511, end: 20070511
  2. MULTIHANCE [Suspect]
     Indication: NUCLEAR MAGNETIC RESONANCE IMAGING
     Route: 042
     Dates: start: 20080304, end: 20080304
  3. SENSIPAR [Concomitant]
  4. EPOGEN [Concomitant]
  5. RENAGEL [Concomitant]
  6. ASPIRIN [Concomitant]
  7. CLONIDINE [Concomitant]
  8. FOSRENOL [Concomitant]
  9. PHOSLO [Concomitant]
  10. LANTUS [Concomitant]
  11. HUMALOG [Concomitant]
  12. COREG [Concomitant]
  13. ROCALTROL [Concomitant]
  14. DIOVAN [Concomitant]
  15. PROHANCE [Suspect]
     Indication: NUCLEAR MAGNETIC RESONANCE IMAGING
     Dates: start: 20071109, end: 20071109
  16. AMITRIPTYLINE HCL [Concomitant]
  17. FERROUS SULFATE TAB [Concomitant]
  18. MAGNEVIST [Suspect]
     Indication: NUCLEAR MAGNETIC RESONANCE IMAGING ABDOMINAL
     Dates: start: 20030913, end: 20030913
  19. PROCRIT [Concomitant]
  20. NORVASC [Concomitant]
  21. ALTACE [Concomitant]

REACTIONS (1)
  - NEPHROGENIC SYSTEMIC FIBROSIS [None]
